FAERS Safety Report 18158823 (Version 1)
Quarter: 2020Q3

REPORT INFORMATION
  Report Type: Spontaneous
  Country: JP (occurrence: JP)
  Receive Date: 20200817
  Receipt Date: 20200817
  Transmission Date: 20201103
  Serious: Yes (Other)
  Sender: FDA-Public Use
  Company Number: JP-PFIZER INC-2020316564

PATIENT
  Age: 16 Year
  Sex: Female

DRUGS (1)
  1. CELECOX [Suspect]
     Active Substance: CELECOXIB
     Dosage: 1200 MG, SINGLE
     Route: 048
     Dates: start: 20200809

REACTIONS (4)
  - Intentional self-injury [Unknown]
  - Intentional overdose [Unknown]
  - Suicide attempt [Unknown]
  - Dizziness [Unknown]

NARRATIVE: CASE EVENT DATE: 20200809
